FAERS Safety Report 9274902 (Version 1)
Quarter: 2013Q2

REPORT INFORMATION
  Report Type: Spontaneous
  Country: CH (occurrence: None)
  Receive Date: 20130429
  Receipt Date: 20130429
  Transmission Date: 20140414
  Serious: Yes (Other)
  Sender: FDA-Public Use
  Company Number: SYM-2013-03044

PATIENT
  Age: 30 Year
  Sex: Female

DRUGS (4)
  1. FLAGYL [Suspect]
     Indication: DIVERTICULUM INTESTINAL
     Route: 048
     Dates: start: 20130112, end: 20130124
  2. CIPROFLOXACIN (CIPROFLOXACIN) [Suspect]
     Indication: DIVERTICULUM INTESTINAL
     Route: 048
     Dates: start: 20130112, end: 20130124
  3. PANADOL (PARACETAMOL) (PARACETAMOL) [Concomitant]
  4. NOVALGIN (METAMIZOLE SODIUM)(METAMIZOLE SODIUM) [Concomitant]

REACTIONS (10)
  - Asthenia [None]
  - Paraesthesia [None]
  - Sensation of heaviness [None]
  - Drug interaction [None]
  - Hypoaesthesia oral [None]
  - Muscular weakness [None]
  - Fall [None]
  - Paraesthesia oral [None]
  - Paraesthesia [None]
  - Pain in extremity [None]
